FAERS Safety Report 4621183-4 (Version None)
Quarter: 2005Q1

REPORT INFORMATION
  Report Type: 
  Country: None (occurrence: None)
  Receive Date: 20050328
  Receipt Date: 20050317
  Transmission Date: 20050727
  Serious: Yes (Hospitalization)
  Sender: FDA-Public Use
  Company Number: 2005024200

PATIENT
  Age: 62 Year
  Sex: Male
  Weight: 128 kg

DRUGS (7)
  1. SPIRONOLACTONE [Suspect]
     Indication: ILL-DEFINED DISORDER
     Dosage: 50 MG (50 MG, EVERY DAY), ORAL
     Route: 048
  2. FUROSEMIDE [Suspect]
     Indication: ILL-DEFINED DISORDER
     Dosage: 1 DOSE FORM (EVERY DAY), ORAL
     Route: 048
  3. TICLOPIDIN 250 HEUMANN (TICLOPIDINE) [Suspect]
     Indication: ARTERIAL DISORDER
     Dosage: 500 MG (250 MG, INTERVAL:
     Dates: end: 20040405
  4. SIMVASTATIN [Suspect]
     Indication: ILL-DEFINED DISORDER
     Dosage: 20 MG (20 MG, EVERY DAY), ORAL
     Route: 048
  5. ESOMEPRAZOLE MAGNESIUM (ESOMEPRAZOLE MAGNESIUM) [Concomitant]
  6. METFORMIN HCL [Concomitant]
  7. BUFLOMEDIL (BUFLOMEDIL) [Concomitant]

REACTIONS (2)
  - BONE MARROW DISORDER [None]
  - PANCYTOPENIA [None]
